FAERS Safety Report 17436104 (Version 1)
Quarter: 2020Q1

REPORT INFORMATION
  Report Type: Spontaneous
  Country: CN (occurrence: CN)
  Receive Date: 20200219
  Receipt Date: 20200219
  Transmission Date: 20200409
  Serious: Yes (Other)
  Sender: FDA-Public Use
  Company Number: CN-BAXTER-2020BAX003655

PATIENT
  Age: 59 Year
  Sex: Female
  Weight: 70 kg

DRUGS (5)
  1. AI SU [Suspect]
     Active Substance: DOCETAXEL
     Indication: BREAST CANCER
     Dosage: AI SU 130 MG + NS 250 ML
     Route: 041
     Dates: start: 20191206, end: 20191206
  2. 0.9% SODIUM CHLORIDE INJECTION [Suspect]
     Active Substance: SODIUM CHLORIDE
     Indication: MEDICATION DILUTION
     Dosage: ENDOXAN 1000 MG + NS 50 ML
     Route: 042
     Dates: start: 20191206, end: 20191206
  3. JIN YOULI XIN RUIBAI [Concomitant]
     Indication: PROPHYLAXIS
     Route: 058
     Dates: start: 20191207
  4. ENDOXAN [Suspect]
     Active Substance: CYCLOPHOSPHAMIDE
     Indication: BREAST CANCER
     Dosage: ENDOXAN 1000 MG + NS 50 ML
     Route: 042
     Dates: start: 20191206, end: 20191206
  5. 0.9% SODIUM CHLORIDE INJECTION [Suspect]
     Active Substance: SODIUM CHLORIDE
     Dosage: AI SU 130 MG + NS 250 ML
     Route: 041
     Dates: start: 20191206, end: 20191206

REACTIONS (1)
  - Agranulocytosis [Recovered/Resolved]

NARRATIVE: CASE EVENT DATE: 20191212
